FAERS Safety Report 7408594-9 (Version None)
Quarter: 2011Q1

REPORT INFORMATION
  Report Type: 
  Country: None (occurrence: None)
  Receive Date: 20110301
  Receipt Date: 20100909
  Transmission Date: 20110831
  Serious: Yes (Other)
  Sender: FDA-Public Use
  Company Number: US-JNJFOC-20100903377

PATIENT
  Age: 17 Year
  Sex: Female

DRUGS (4)
  1. UNSPECIFIED ROBITUSSIN (GUAIFENESIN) [Concomitant]
  2. TYLENOL COLD HEAD CONGESTION SEVERE COOL BURST DAYTIME (ACETAMINOPHEN/ [Concomitant]
  3. IBUPROFEN [Suspect]
     Indication: ILL-DEFINED DISORDER
  4. TYLENOL SINUS CONGESTION + PAIN SEVERE COOL BURST (ACETAMINOPHEN/ GUAI [Concomitant]

REACTIONS (1)
  - ANAPHYLACTIC REACTION [None]
